FAERS Safety Report 9285185 (Version 1)
Quarter: 2013Q2

REPORT INFORMATION
  Report Type: Report from Study
  Country: CA (occurrence: CA)
  Receive Date: 20130513
  Receipt Date: 20130513
  Transmission Date: 20140414
  Serious: Yes (Hospitalization)
  Sender: FDA-Public Use
  Company Number: CA-JNJFOC-20130504510

PATIENT
  Age: 47 Year
  Sex: Female
  Weight: 70.31 kg

DRUGS (1)
  1. SIMPONI [Suspect]
     Indication: RHEUMATOID ARTHRITIS
     Dosage: 0.5ML PRE-FILLED SYRINGE
     Route: 058
     Dates: start: 2006

REACTIONS (3)
  - Knee arthroplasty [Recovered/Resolved]
  - Hysterectomy [Unknown]
  - Haemorrhage [Unknown]
